FAERS Safety Report 7480770-9 (Version None)
Quarter: 2011Q2

REPORT INFORMATION
  Report Type: 
  Country: None (occurrence: None)
  Receive Date: 20110512
  Receipt Date: 20110512
  Transmission Date: 20111010
  Serious: Yes (Hospitalization, Other)
  Sender: FDA-Public Use
  Company Number: None

PATIENT
  Age: 88 Year
  Sex: Male
  Weight: 63.5036 kg

DRUGS (2)
  1. UROXATRAL [Suspect]
     Indication: PROSTATOMEGALY
     Dosage: 10MG 1 TABLET PER DAY
     Dates: start: 20100915, end: 20100925
  2. PROSCAR TABS [Concomitant]

REACTIONS (5)
  - DIVERTICULITIS [None]
  - NO THERAPEUTIC RESPONSE [None]
  - WEIGHT DECREASED [None]
  - ABDOMINAL PAIN UPPER [None]
  - FLATULENCE [None]
